FAERS Safety Report 7649232-X (Version None)
Quarter: 2011Q3

REPORT INFORMATION
  Report Type: 
  Country: None (occurrence: None)
  Receive Date: 20110726
  Receipt Date: 20110725
  Transmission Date: 20111222
  Serious: Yes (Death)
  Sender: FDA-Public Use
  Company Number: AE-711-233

PATIENT
  Sex: Female

DRUGS (2)
  1. LIDODERM [Suspect]
     Indication: FALL
     Dosage: 3 PATCHES
  2. LIDODERM [Suspect]
     Indication: RIB FRACTURE
     Dosage: 3 PATCHES

REACTIONS (1)
  - DEATH [None]
